FAERS Safety Report 9056874 (Version 1)
Quarter: 2013Q1

REPORT INFORMATION
  Report Type: Report from Study
  Country: JP (occurrence: JP)
  Receive Date: 20130201
  Receipt Date: 20130201
  Transmission Date: 20140127
  Serious: Yes (Other)
  Sender: FDA-Public Use
  Company Number: JP-GLAXOSMITHKLINE-B0860841A

PATIENT
  Age: 62 None
  Sex: Female
  Weight: 46 kg

DRUGS (15)
  1. TYKERB [Suspect]
     Indication: BREAST CANCER
     Route: 048
     Dates: start: 20100518
  2. XELODA [Suspect]
     Route: 048
     Dates: start: 20100518
  3. ALLEGRA [Concomitant]
     Indication: RHINITIS ALLERGIC
     Route: 048
  4. GASMOTIN [Concomitant]
     Indication: GASTRITIS
     Route: 048
  5. PRIMPERAN [Concomitant]
     Indication: GASTRITIS
     Route: 048
  6. VITAMEDIN [Concomitant]
     Indication: NEUROPATHY PERIPHERAL
     Route: 048
  7. JUVELA [Concomitant]
     Indication: HYPERTENSION
     Route: 048
  8. ASTOMIN [Concomitant]
     Indication: UPPER RESPIRATORY TRACT INFLAMMATION
     Route: 048
  9. PL [Concomitant]
     Indication: UPPER RESPIRATORY TRACT INFLAMMATION
     Route: 048
  10. ADALAT L [Concomitant]
     Indication: HYPERTENSION
     Route: 048
     Dates: end: 20100615
  11. PARIET [Concomitant]
     Indication: GASTRITIS
     Route: 048
  12. BROTIZOLAM [Concomitant]
     Indication: INSOMNIA
     Route: 048
  13. LOBU [Concomitant]
     Indication: CANCER PAIN
     Route: 048
  14. CIRCANETTEN [Concomitant]
     Indication: HAEMORRHOIDS
     Route: 048
     Dates: start: 20100727
  15. METHYCOBAL [Concomitant]
     Indication: NEUROPATHY PERIPHERAL
     Route: 048
     Dates: start: 20100824, end: 20100907

REACTIONS (4)
  - Lymphangitis [Recovering/Resolving]
  - Palmar-plantar erythrodysaesthesia syndrome [Recovering/Resolving]
  - Stomatitis [Recovering/Resolving]
  - Diarrhoea [Recovering/Resolving]
